FAERS Safety Report 23474428 (Version 1)
Quarter: 2024Q1

REPORT INFORMATION
  Report Type: Report from Study
  Country: US (occurrence: US)
  Receive Date: 20240204
  Receipt Date: 20240204
  Transmission Date: 20240410
  Serious: Yes (Hospitalization)
  Sender: FDA-Public Use
  Company Number: US-EXELIXIS-CABO-23061876

PATIENT
  Age: 69 Year
  Sex: Male

DRUGS (3)
  1. CABOMETYX [Suspect]
     Active Substance: CABOZANTINIB S-MALATE
     Indication: Renal cancer
     Dosage: 40 MG, QD
     Route: 048
  2. LEVOTHYROXINE [Concomitant]
     Active Substance: LEVOTHYROXINE\LEVOTHYROXINE SODIUM
  3. CLONIDINE [Concomitant]
     Active Substance: CLONIDINE

REACTIONS (4)
  - Cerebral thrombosis [Unknown]
  - Blood pressure increased [Unknown]
  - Diarrhoea [Unknown]
  - Pancreatic mass [Unknown]

NARRATIVE: CASE EVENT DATE: 20230201
